FAERS Safety Report 23218087 (Version 1)
Quarter: 2023Q4

REPORT INFORMATION
  Report Type: Spontaneous
  Country: RO (occurrence: RO)
  Receive Date: 20231122
  Receipt Date: 20231122
  Transmission Date: 20240110
  Serious: Yes (Other)
  Sender: FDA-Public Use
  Company Number: RO-AMGEN-ROUSP2023198538

PATIENT
  Sex: Female

DRUGS (4)
  1. LEUCOVORIN [Suspect]
     Active Substance: LEUCOVORIN\LEUCOVORIN CALCIUM
     Indication: Colorectal cancer metastatic
     Dosage: UNK
  2. OXALIPLATIN [Suspect]
     Active Substance: OXALIPLATIN
     Indication: Colorectal cancer metastatic
     Dosage: UNK
  3. FLUOROURACIL [Suspect]
     Active Substance: FLUOROURACIL
     Indication: Colorectal cancer metastatic
     Dosage: UNK
  4. VECTIBIX [Suspect]
     Active Substance: PANITUMUMAB
     Indication: Colorectal cancer metastatic
     Dosage: UNK?FORM OF ADMIN.- SOLUTION FOR INJECTION?ROUTE OF ADMIN.- INTRAVENOUS (NOT OTHERWISE SPECIFIED) (

REACTIONS (7)
  - Rectal haemorrhage [Unknown]
  - Rash [Unknown]
  - Sinus tachycardia [Unknown]
  - Hypertension [Unknown]
  - Therapy partial responder [Unknown]
  - Rectal tenesmus [Unknown]
  - Proctitis [Unknown]

NARRATIVE: CASE EVENT DATE: 20230101
